FAERS Safety Report 21664222 (Version 1)
Quarter: 2022Q4

REPORT INFORMATION
  Report Type: Report from Study
  Country: US (occurrence: US)
  Receive Date: 20221130
  Receipt Date: 20221130
  Transmission Date: 20230113
  Serious: No
  Sender: FDA-Public Use
  Company Number: US-ABBVIE-4170600

PATIENT
  Sex: Female

DRUGS (4)
  1. HUMIRA [Suspect]
     Active Substance: ADALIMUMAB
     Indication: Crohn^s disease
     Dosage: CITRATE FREE
     Route: 058
  2. Pfizer/BioNTech [Concomitant]
     Indication: COVID-19 immunisation
     Dosage: FIRST SHOT, ADMINISTERED ONCE
     Route: 030
     Dates: start: 20210805, end: 20210805
  3. Pfizer/BioNTech [Concomitant]
     Indication: COVID-19 immunisation
     Dosage: SECOND SHOT, ADMINISTERED ONCE
     Route: 030
     Dates: start: 20210904, end: 20210904
  4. Pfizer/BioNTech [Concomitant]
     Indication: COVID-19 immunisation
     Dosage: BOOSTER SHOT, ADMINISTERED ONCE
     Route: 030
     Dates: start: 20220202, end: 20220202

REACTIONS (2)
  - Haematochezia [Unknown]
  - Abdominal pain upper [Not Recovered/Not Resolved]
